FAERS Safety Report 9458060 (Version 3)
Quarter: 2013Q4

REPORT INFORMATION
  Report Type: Spontaneous
  Country: US (occurrence: US)
  Receive Date: 20130814
  Receipt Date: 20131017
  Transmission Date: 20140711
  Serious: Yes (Death)
  Sender: FDA-Public Use
  Company Number: US-009507513-1308USA003296

PATIENT
  Age: 52 Year
  Sex: Female

DRUGS (2)
  1. TEMODAR [Suspect]
     Indication: BRAIN CANCER METASTATIC
     Dosage: 20 MG, QD
     Route: 048
     Dates: start: 20130430
  2. TEMODAR [Suspect]
     Dosage: 140 MG, QD
     Route: 048

REACTIONS (1)
  - Disease progression [Fatal]
